FAERS Safety Report 10048650 (Version 3)
Quarter: 2014Q2

REPORT INFORMATION
  Report Type: Spontaneous
  Country: US (occurrence: US)
  Receive Date: 20140331
  Receipt Date: 20140509
  Transmission Date: 20141212
  Serious: No
  Sender: FDA-Public Use
  Company Number: US-PFIZER INC-2014089831

PATIENT
  Sex: Female

DRUGS (3)
  1. NEURONTIN [Suspect]
     Indication: TRIGEMINAL NEURALGIA
     Dosage: 100 MG, 3X/DAY (AT SIX IN THE MORNING, FIVE IN THE AFTERNOON AND SIX IN EVENING)
  2. TEGRETOL [Suspect]
     Indication: TRIGEMINAL NEURALGIA
     Dosage: 200 MG, 2X/DAY(200 MG IN THE MORNING AND 200 MG IN THE EVENING)
  3. TYLENOL [Suspect]
     Indication: TRIGEMINAL NEURALGIA
     Dosage: UNK

REACTIONS (8)
  - Aphasia [Unknown]
  - Slow speech [Unknown]
  - Vision blurred [Unknown]
  - Tremor [Unknown]
  - Anxiety [Unknown]
  - Walking aid user [Unknown]
  - Arthritis [Unknown]
  - Hypoaesthesia [Unknown]
